FAERS Safety Report 9257737 (Version 1)
Quarter: 2013Q2

REPORT INFORMATION
  Report Type: Spontaneous
  Country: US (occurrence: None)
  Receive Date: 20130424
  Receipt Date: 20130424
  Transmission Date: 20140414
  Serious: No
  Sender: FDA-Public Use
  Company Number: None

PATIENT
  Age: 56 Year
  Sex: Female
  Weight: 49.9 kg

DRUGS (1)
  1. BETAMETASONE [Suspect]
     Indication: CERVICAL SPINAL STENOSIS
     Route: 008
     Dates: start: 20130301, end: 20130301

REACTIONS (6)
  - Thirst [None]
  - Pollakiuria [None]
  - General physical health deterioration [None]
  - Gastric disorder [None]
  - Adrenal disorder [None]
  - Thyroid disorder [None]
